FAERS Safety Report 5756944-1 (Version None)
Quarter: 2008Q2

REPORT INFORMATION
  Report Type: 
  Country: None (occurrence: None)
  Receive Date: 20080603
  Receipt Date: 20080523
  Transmission Date: 20081010
  Serious: Yes (Hospitalization)
  Sender: FDA-Public Use
  Company Number: JP-JNJFOC-20080306858

PATIENT
  Sex: Female
  Weight: 36 kg

DRUGS (15)
  1. REMICADE [Suspect]
     Route: 042
  2. REMICADE [Suspect]
     Dosage: 3 INFUSIONS
     Route: 042
  3. REMICADE [Suspect]
     Indication: RHEUMATOID ARTHRITIS
     Route: 042
  4. PREDONINE [Suspect]
     Indication: RHEUMATOID ARTHRITIS
     Route: 048
  5. AZULFIDINE EN-TABS [Suspect]
     Indication: RHEUMATOID ARTHRITIS
     Route: 048
  6. METHOTREXATE [Suspect]
     Indication: RHEUMATOID ARTHRITIS
     Route: 048
  7. DEPAKENE [Concomitant]
     Indication: EPILEPSY
  8. PLATIBIT [Concomitant]
     Indication: OSTEOPOROSIS
     Route: 048
  9. LASIX [Concomitant]
     Indication: CARDIAC FAILURE CONGESTIVE
     Route: 048
  10. TAKEPRON [Concomitant]
     Indication: GASTRITIS
     Route: 048
  11. BERIZYM [Concomitant]
     Indication: PANCREATITIS CHRONIC
     Route: 048
  12. KAMOSTAAL [Concomitant]
     Indication: PANCREATITIS CHRONIC
     Route: 048
  13. NIKORANMART [Concomitant]
     Indication: ANGINA PECTORIS
     Route: 048
  14. MAGNESIUM OXIDE [Concomitant]
     Indication: CONSTIPATION
     Route: 048
  15. FOLIAMIN [Concomitant]
     Indication: RHEUMATOID ARTHRITIS
     Route: 048

REACTIONS (1)
  - MYCOBACTERIUM AVIUM COMPLEX INFECTION [None]
